FAERS Safety Report 5525487-2 (Version None)
Quarter: 2007Q4

REPORT INFORMATION
  Report Type: 
  Country: None (occurrence: None)
  Receive Date: 20071120
  Receipt Date: 20071106
  Transmission Date: 20080405
  Serious: Yes (Other)
  Sender: FDA-Public Use
  Company Number: CHPA2007US11723

PATIENT
  Age: 32 Year
  Sex: Female
  Weight: 72.6 kg

DRUGS (2)
  1. BENEFIBER (NCH) [Suspect]
     Indication: CONSTIPATION
     Dosage: 2 TSP, TAKEN TWICE
     Dates: start: 20071102
  2. VITAMINS (NO INGREDIENTS/SUBSTANCES) [Concomitant]

REACTIONS (2)
  - FLATULENCE [None]
  - HAEMATOCHEZIA [None]
